APPROVED DRUG PRODUCT: ZANTAC 150
Active Ingredient: RANITIDINE HYDROCHLORIDE
Strength: EQ 150MG BASE **Federal Register determination that product was not discontinued or withdrawn for safety or effectiveness reasons**
Dosage Form/Route: TABLET;ORAL
Application: N018703 | Product #001
Applicant: GLAXO GROUP LTD ENGLAND DBA GLAXOSMITHKLINE
Approved: Jun 9, 1983 | RLD: Yes | RS: No | Type: DISCN